FAERS Safety Report 7463216-6 (Version None)
Quarter: 2011Q2

REPORT INFORMATION
  Report Type: 
  Country: None (occurrence: None)
  Receive Date: 20110506
  Receipt Date: 20110503
  Transmission Date: 20111010
  Serious: Yes (Hospitalization, Other)
  Sender: FDA-Public Use
  Company Number: US-PFIZER INC-2011044465

PATIENT
  Sex: Female

DRUGS (20)
  1. AMITRIPTYLINE [Concomitant]
     Indication: MIGRAINE
     Dosage: UNK
     Dates: start: 20000101, end: 20090101
  2. XOLAIR [Concomitant]
     Indication: ASTHMA
     Dosage: UNK
     Dates: start: 20000101
  3. LIPITOR [Concomitant]
     Indication: BLOOD CHOLESTEROL
     Dosage: UNK
     Dates: start: 20000101
  4. KLOR-CON [Concomitant]
     Indication: HYPOKALAEMIA
     Dosage: UNK
     Dates: start: 20000101
  5. CHANTIX [Suspect]
     Indication: SMOKING CESSATION THERAPY
     Dosage: STARTING MONTH PACK, UNK
     Dates: start: 20070401, end: 20070701
  6. XOPENEX [Concomitant]
     Indication: ASTHMA
     Dosage: UNK
     Dates: start: 20000101
  7. CHANTIX [Suspect]
     Dosage: 1 MG, UNK
     Dates: start: 20080101, end: 20081201
  8. SPIRIVA [Concomitant]
     Indication: ASTHMA
     Dosage: UNK
  9. LASIX [Concomitant]
     Indication: HYPERTENSION
     Dosage: UNK
     Dates: start: 20000101
  10. SLOW-K [Concomitant]
     Indication: HYPOKALAEMIA
     Dosage: UNK
     Dates: start: 20000101
  11. BACTROBAN [Concomitant]
     Indication: WOUND
     Dosage: UNK
     Dates: start: 20000101
  12. NEXIUM [Concomitant]
     Indication: REFLUX OESOPHAGITIS
     Dosage: UNK
  13. MONTELUKAST [Concomitant]
     Indication: HYPERSENSITIVITY
     Dosage: UNK
  14. ADVAIR DISKUS 100/50 [Concomitant]
     Indication: ASTHMA
     Dosage: UNK
  15. FOSAMAX [Concomitant]
     Indication: OSTEOPOROSIS
     Dosage: UNK
  16. OXYCONTIN [Concomitant]
     Indication: ARTHRITIS
     Dosage: UNK
     Dates: start: 20000101
  17. WARFARIN SODIUM [Concomitant]
     Indication: PULMONARY EMBOLISM
     Dosage: UNK
     Dates: start: 19700101
  18. WARFARIN SODIUM [Concomitant]
     Indication: DEEP VEIN THROMBOSIS
  19. TOPIRAMATE [Concomitant]
     Indication: MIGRAINE
     Dosage: UNK
     Dates: start: 20060101
  20. LISINOPRIL [Concomitant]
     Indication: HYPERTENSION
     Dosage: UNK
     Dates: start: 20000101, end: 20100101

REACTIONS (5)
  - ABNORMAL BEHAVIOUR [None]
  - SUICIDE ATTEMPT [None]
  - MENTAL STATUS CHANGES [None]
  - DEPRESSION [None]
  - INTENTIONAL OVERDOSE [None]
